FAERS Safety Report 25153243 (Version 1)
Quarter: 2025Q2

REPORT INFORMATION
  Report Type: Report from Study
  Country: US (occurrence: US)
  Receive Date: 20250403
  Receipt Date: 20250403
  Transmission Date: 20250717
  Serious: Yes (Hospitalization)
  Sender: CSL BEHRING
  Company Number: US-BEH-2025200489

PATIENT
  Age: 59 Year
  Sex: Female
  Weight: 120.18 kg

DRUGS (4)
  1. HIZENTRA [Suspect]
     Active Substance: HUMAN IMMUNOGLOBULIN G
     Indication: Pancytopenia
     Dosage: (PRODUCT STRENGHT 50G), QW
     Route: 058
     Dates: start: 20250322, end: 20250322
  2. HIZENTRA [Suspect]
     Active Substance: HUMAN IMMUNOGLOBULIN G
     Dosage: (PRODUCT STRENGHT 50G), QW
     Route: 058
     Dates: start: 20250322, end: 20250322
  3. HIZENTRA [Suspect]
     Active Substance: HUMAN IMMUNOGLOBULIN G
     Dosage: (PRODUCT STRENGHT 50G), QW
     Route: 058
     Dates: start: 20250322, end: 20250322
  4. HIZENTRA [Suspect]
     Active Substance: HUMAN IMMUNOGLOBULIN G
     Dosage: 65 ML, QW(OF 125 ML)
     Route: 065
     Dates: start: 20250322, end: 20250322

REACTIONS (5)
  - Infusion related reaction [Unknown]
  - Unresponsive to stimuli [Unknown]
  - Feeling abnormal [Unknown]
  - Blood pressure increased [Unknown]
  - Off label use [Unknown]

NARRATIVE: CASE EVENT DATE: 20250322
